FAERS Safety Report 10141770 (Version 2)
Quarter: 2014Q3

REPORT INFORMATION
  Report Type: Spontaneous
  Country: FR (occurrence: FR)
  Receive Date: 20140429
  Receipt Date: 20140911
  Transmission Date: 20150326
  Serious: Yes (Hospitalization)
  Sender: FDA-Public Use
  Company Number: FR-PFIZER INC-2014112387

PATIENT
  Age: 58 Year
  Sex: Male

DRUGS (4)
  1. BIPRETERAX [Concomitant]
     Active Substance: INDAPAMIDE\PERINDOPRIL
     Dosage: 1 DF, 1X/DAY
  2. ZOLOFT [Suspect]
     Active Substance: SERTRALINE HYDROCHLORIDE
     Dosage: 1 DF, 1X/DAY
     Route: 048
  3. STILNOX [Concomitant]
     Active Substance: ZOLPIDEM TARTRATE
     Dosage: 1 DF, 1X/DAY (AT BEDTIME)
  4. KARDEGIC [Interacting]
     Active Substance: ASPIRIN LYSINE
     Indication: CEREBROVASCULAR ACCIDENT
     Dosage: 1 DF, 1X/DAY
     Route: 048
     Dates: start: 2011, end: 20140313

REACTIONS (10)
  - Disorientation [Unknown]
  - Haemorrhage [Unknown]
  - Brain contusion [Recovered/Resolved]
  - Loss of consciousness [Unknown]
  - Drug interaction [Unknown]
  - Anaemia [Recovering/Resolving]
  - Alcohol poisoning [Unknown]
  - Wound haemorrhage [Recovered/Resolved]
  - Fall [Unknown]
  - Ascites [Unknown]

NARRATIVE: CASE EVENT DATE: 2014
